FAERS Safety Report 20327678 (Version 1)
Quarter: 2022Q1

REPORT INFORMATION
  Report Type: Spontaneous
  Country: US (occurrence: None)
  Receive Date: 20220112
  Receipt Date: 20220112
  Transmission Date: 20220423
  Serious: No
  Sender: FDA-Public Use
  Company Number: 2022A013049

PATIENT
  Sex: Female
  Weight: 74.8 kg

DRUGS (1)
  1. SYMBICORT [Suspect]
     Active Substance: BUDESONIDE\FORMOTEROL FUMARATE DIHYDRATE
     Indication: Chronic obstructive pulmonary disease
     Dosage: 80-4.5 MCG INHALER 2 PUFFS TWICE A DAY
     Route: 055

REACTIONS (4)
  - Dyspnoea [Recovered/Resolved]
  - Asthenia [Unknown]
  - Device defective [Unknown]
  - Drug dose omission by device [Unknown]
